FAERS Safety Report 6525637-5 (Version None)
Quarter: 2009Q4

REPORT INFORMATION
  Report Type: 
  Country: None (occurrence: None)
  Receive Date: 20091222
  Receipt Date: 20091209
  Transmission Date: 20100525
  Serious: Yes (Life-Threatening, Hospitalization, Other)
  Sender: FDA-Public Use
  Company Number: 2009-00085

PATIENT
  Age: 13 Year
  Sex: Female

DRUGS (5)
  1. CEFOTAXIME SODIUM [Suspect]
     Dosage: INTRAVENOUS
     Route: 042
  2. DICLOFENAC (50 MILLIGRAM) [Suspect]
     Indication: ANALGESIC THERAPY
     Dosage: , 1 TOTAL, PERINEURAL
     Route: 053
  3. HYDROCORTISONE [Suspect]
     Dosage: INTRAVENOUS
     Route: 042
  4. MESALAZINE [Suspect]
     Indication: CROHN'S DISEASE
     Dosage: INTRAVENOUS
     Route: 042
  5. METRONIDAZOLE [Suspect]
     Dosage: INTRAVENOUS
     Route: 042

REACTIONS (5)
  - ANURIA [None]
  - HAEMODIALYSIS [None]
  - RENAL HAEMORRHAGE [None]
  - RENAL INFARCT [None]
  - RENAL TUBULAR NECROSIS [None]
